FAERS Safety Report 9994658 (Version 1)
Quarter: 2014Q1

REPORT INFORMATION
  Report Type: Spontaneous
  Country: US (occurrence: None)
  Receive Date: 20140307
  Receipt Date: 20140307
  Transmission Date: 20141002
  Serious: Yes (Other)
  Sender: FDA-Public Use
  Company Number: None

PATIENT
  Age: 70 Year
  Sex: Female

DRUGS (1)
  1. HUMIRA PEN 40MG ABBVIE [Suspect]
     Indication: PSORIATIC ARTHROPATHY
     Dosage: 40MG, BI-MONTHLY, SUB-Q
     Dates: start: 20131004, end: 20140225

REACTIONS (1)
  - Urticaria [None]
